FAERS Safety Report 5145406-0 (Version None)
Quarter: 2006Q4

REPORT INFORMATION
  Report Type: 
  Country: None (occurrence: None)
  Receive Date: 20061026
  Receipt Date: 20061013
  Transmission Date: 20070319
  Serious: Yes (Other)
  Sender: FDA-Public Use
  Company Number: 200610307BBE

PATIENT
  Sex: 0

DRUGS (1)
  1. HYPERHEP [Suspect]
     Indication: PROPHYLAXIS

REACTIONS (1)
  - HEPATITIS B SURFACE ANTIGEN POSITIVE [None]
